FAERS Safety Report 24800697 (Version 1)
Quarter: 2025Q1

REPORT INFORMATION
  Report Type: Spontaneous
  Country: GB (occurrence: GB)
  Receive Date: 20250102
  Receipt Date: 20250102
  Transmission Date: 20250409
  Serious: Yes (Other)
  Sender: ABBVIE
  Company Number: GB-MHRA-TPP37785506C5032742YC1735551837162

PATIENT
  Age: 73 Year
  Sex: Female
  Weight: 56 kg

DRUGS (3)
  1. ATOGEPANT [Suspect]
     Active Substance: ATOGEPANT
     Indication: Product used for unknown indication
     Route: 065
     Dates: start: 20241120
  2. PROCHLORPERAZINE [Concomitant]
     Active Substance: PROCHLORPERAZINE
     Indication: Ill-defined disorder
     Dates: start: 20190801
  3. ESTRADIOL [Concomitant]
     Active Substance: ESTRADIOL
     Indication: Ill-defined disorder
     Dates: start: 20231102

REACTIONS (3)
  - Swelling face [Recovered/Resolved]
  - Vision blurred [Recovered/Resolved]
  - Pruritus [Recovered/Resolved]

NARRATIVE: CASE EVENT DATE: 20241120
